FAERS Safety Report 9307642 (Version 2)
Quarter: 2013Q2

REPORT INFORMATION
  Report Type: Spontaneous
  Country: US (occurrence: US)
  Receive Date: 20130524
  Receipt Date: 20130605
  Transmission Date: 20140414
  Serious: Yes (Other)
  Sender: FDA-Public Use
  Company Number: US-PFIZER INC-2013157846

PATIENT
  Sex: Male

DRUGS (5)
  1. TIKOSYN [Suspect]
     Indication: ATRIAL FIBRILLATION
     Dosage: 500 UG, EVERY 12 HOURS
  2. TIKOSYN [Suspect]
     Dosage: 250 UG, EVERY 12 HOURS
  3. TIKOSYN [Suspect]
     Dosage: 375 UG, EVERY 12 HOURS
  4. TIKOSYN [Suspect]
     Dosage: ALTERNATING 375 AND 250 MCG EVERY 12 HOURS
  5. TIKOSYN [Suspect]
     Dosage: 250 UG, EVERY 12 HOURS

REACTIONS (1)
  - Electrocardiogram QT prolonged [Unknown]
